FAERS Safety Report 9551350 (Version 2)
Quarter: 2014Q1

REPORT INFORMATION
  Report Type: Spontaneous
  Country: US (occurrence: None)
  Receive Date: 20130627
  Receipt Date: 20130930
  Transmission Date: 20141002
  Serious: No
  Sender: FDA-Public Use
  Company Number: 1000045449

PATIENT
  Age: 80 Year
  Sex: Female

DRUGS (1)
  1. LINZESS (LINACLOTIDE) (145 MICROGRAM, CAPSULES) [Suspect]
     Indication: IRRITABLE BOWEL SYNDROME
     Dosage: (145 MCG, 1 IN 1
     Route: 048
     Dates: start: 201305, end: 20130524

REACTIONS (1)
  - Dizziness [None]
